FAERS Safety Report 13995501 (Version 2)
Quarter: 2018Q1

REPORT INFORMATION
  Report Type: Report from Study
  Country: US (occurrence: US)
  Receive Date: 20170921
  Receipt Date: 20180205
  Transmission Date: 20180508
  Serious: Yes (Death, Other)
  Sender: FDA-Public Use
  Company Number: US-ROCHE-1994696

PATIENT
  Age: 49 Year
  Sex: Female

DRUGS (12)
  1. RITUXAN [Suspect]
     Active Substance: RITUXIMAB
     Dosage: 855 MG IV EVERY TWENTY ONE DAYS ;ONGOING: NO
     Route: 042
     Dates: start: 20170511
  2. RITUXAN [Suspect]
     Active Substance: RITUXIMAB
     Route: 042
     Dates: start: 20161028
  3. RITUXAN [Suspect]
     Active Substance: RITUXIMAB
     Route: 042
     Dates: start: 20161013
  4. RITUXAN [Suspect]
     Active Substance: RITUXIMAB
     Dosage: 840 MG IV EVERY TWENTY ONE DAYS ;ONGOING: NO
     Route: 042
     Dates: start: 20170803
  5. RITUXAN [Suspect]
     Active Substance: RITUXIMAB
     Route: 042
     Dates: start: 20161002
  6. RITUXAN [Suspect]
     Active Substance: RITUXIMAB
     Dosage: 855 MG IV EVERY TWENTY ONE DAYS ;ONGOING: NO
     Route: 042
     Dates: start: 20170531
  7. RITUXAN [Suspect]
     Active Substance: RITUXIMAB
     Indication: NON-HODGKIN^S LYMPHOMA
     Dosage: 859 MG IV EVERY TWENTY ONE DAYS ;ONGOING: NO
     Route: 042
     Dates: start: 20170117
  8. RITUXAN [Suspect]
     Active Substance: RITUXIMAB
     Indication: DIFFUSE LARGE B-CELL LYMPHOMA
     Dosage: 859 MG IV EVERY TWENTY ONE DAYS ;ONGOING: NO
     Route: 042
     Dates: start: 20170202
  9. CATHFLO ACTIVASE [Suspect]
     Active Substance: ALTEPLASE
     Indication: FIBROSIS
     Dosage: ONGOING:NO
     Route: 042
     Dates: start: 20170331
  10. ADRIAMYCIN [Concomitant]
     Active Substance: DOXORUBICIN HYDROCHLORIDE
  11. CYTOXAN [Concomitant]
     Active Substance: CYCLOPHOSPHAMIDE
  12. VINCRISTINE [Concomitant]
     Active Substance: VINCRISTINE

REACTIONS (4)
  - Death [Fatal]
  - Renal impairment [Unknown]
  - Treatment failure [Unknown]
  - Pain [Unknown]

NARRATIVE: CASE EVENT DATE: 20170904
